FAERS Safety Report 12944302 (Version 1)
Quarter: 2016Q4

REPORT INFORMATION
  Report Type: Spontaneous
  Country: US (occurrence: US)
  Receive Date: 20161115
  Receipt Date: 20161115
  Transmission Date: 20170207
  Serious: No
  Sender: FDA-Public Use
  Company Number: US-TEVA-710463USA

PATIENT
  Age: 7 Decade
  Sex: Male

DRUGS (4)
  1. PROAIR HFA [Suspect]
     Active Substance: ALBUTEROL SULFATE
     Indication: NASOPHARYNGITIS
  2. PROAIR HFA [Suspect]
     Active Substance: ALBUTEROL SULFATE
     Indication: BRONCHIAL DISORDER
  3. PRIMATENE MIST [Suspect]
     Active Substance: EPINEPHRINE
     Dosage: 5-6 YEARS AGO
  4. PRIMATENE [Suspect]
     Active Substance: EPHEDRINE HYDROCHLORIDE\GUAIFENESIN
     Dosage: ONE TIME 30 YEARS AGO

REACTIONS (3)
  - Expired product administered [Unknown]
  - Product use issue [Unknown]
  - Drug ineffective for unapproved indication [Unknown]
